FAERS Safety Report 7796182-4 (Version None)
Quarter: 2011Q4

REPORT INFORMATION
  Report Type: 
  Country: None (occurrence: None)
  Receive Date: 20111004
  Receipt Date: 20110927
  Transmission Date: 20120403
  Serious: Yes (Death)
  Sender: FDA-Public Use
  Company Number: AU-AMGEN-AUSSP2011036458

PATIENT
  Age: 49 Year
  Sex: Male

DRUGS (1)
  1. ARANESP [Suspect]
     Indication: RENAL FAILURE CHRONIC
     Dosage: 80 MUG, UNK

REACTIONS (4)
  - SUBARACHNOID HAEMORRHAGE [None]
  - GASTROINTESTINAL HAEMORRHAGE [None]
  - THROMBOSIS [None]
  - VASCULAR OCCLUSION [None]
